FAERS Safety Report 4458506-5 (Version None)
Quarter: 2004Q3

REPORT INFORMATION
  Report Type: 
  Country: None (occurrence: None)
  Receive Date: 20040922
  Receipt Date: 20040728
  Transmission Date: 20050211
  Serious: Yes (Hospitalization)
  Sender: FDA-Public Use
  Company Number: US-SHR-03-006696

PATIENT
  Age: 67 Year
  Sex: Female
  Weight: 107.9 kg

DRUGS (12)
  1. BETASERON [Suspect]
     Indication: MULTIPLE SCLEROSIS
     Dosage: 8 MIU, EVERY 2D, SUBCUTANEOUS
     Route: 058
     Dates: start: 19971001
  2. ZYRTEC [Concomitant]
  3. LOMOTIL [Concomitant]
  4. LEVOTHYROXINE SODIUM [Concomitant]
  5. CLONAZEPAM [Concomitant]
  6. CARBAMAZEPINE [Concomitant]
  7. BACLOFEN [Concomitant]
  8. MECLIZINE [Concomitant]
  9. SOTALOL HCL [Concomitant]
  10. ZESTRIL [Concomitant]
  11. TRIAMTEREN [Concomitant]
  12. HYDROCHLORZIDE [Concomitant]

REACTIONS (3)
  - ALOPECIA [None]
  - MULTIPLE SCLEROSIS [None]
  - POLYMYALGIA [None]
